FAERS Safety Report 9496112 (Version 1)
Quarter: 2013Q3

REPORT INFORMATION
  Report Type: Spontaneous
  Country: BE (occurrence: BE)
  Receive Date: 20130904
  Receipt Date: 20130904
  Transmission Date: 20140515
  Serious: Yes (Other)
  Sender: FDA-Public Use
  Company Number: BE-ROCHE-1269901

PATIENT
  Sex: Male
  Weight: 80 kg

DRUGS (1)
  1. MIRCERA [Suspect]
     Indication: ANAEMIA
     Route: 042

REACTIONS (2)
  - Dyspnoea [Recovered/Resolved]
  - Erythema [Recovered/Resolved]
